FAERS Safety Report 5391709-4 (Version None)
Quarter: 2007Q3

REPORT INFORMATION
  Report Type: 
  Country: None (occurrence: None)
  Receive Date: 20070719
  Receipt Date: 20070712
  Transmission Date: 20080115
  Serious: Yes (Other)
  Sender: FDA-Public Use
  Company Number: IT-MERCK-0707ITA00017

PATIENT
  Age: 45 Year
  Sex: Male

DRUGS (2)
  1. VYTORIN [Suspect]
     Indication: CARDIOVASCULAR EVENT PROPHYLAXIS
     Route: 048
     Dates: start: 20070401
  2. CLOPIDOGREL BISULFATE [Concomitant]
     Route: 065

REACTIONS (2)
  - CORONARY ARTERY THROMBOSIS [None]
  - DRUG INEFFECTIVE [None]
